FAERS Safety Report 10716826 (Version 2)
Quarter: 2015Q2

REPORT INFORMATION
  Report Type: Spontaneous
  Country: BR (occurrence: BR)
  Receive Date: 20150116
  Receipt Date: 20150409
  Transmission Date: 20150821
  Serious: Yes (Other)
  Sender: FDA-Public Use
  Company Number: BR-PFIZER INC-2015013166

PATIENT
  Age: 27 Year
  Sex: Female
  Weight: 67 kg

DRUGS (1)
  1. SUTENT [Suspect]
     Active Substance: SUNITINIB MALATE
     Indication: NEUROENDOCRINE TUMOUR
     Dosage: 50 MG, CYCLIC (4 PER 2)
     Route: 048
     Dates: start: 20141222

REACTIONS (14)
  - Fear [Unknown]
  - Feeling abnormal [Unknown]
  - Vomiting [Unknown]
  - Pain [Unknown]
  - Presyncope [Unknown]
  - Weight decreased [Unknown]
  - Abdominal pain upper [Unknown]
  - Asthenia [Unknown]
  - Feeding disorder [Unknown]
  - Sluggishness [Unknown]
  - Retching [Unknown]
  - Back pain [Unknown]
  - Yellow skin [Unknown]
  - Tongue disorder [Unknown]
